FAERS Safety Report 17691656 (Version 3)
Quarter: 2020Q4

REPORT INFORMATION
  Report Type: Spontaneous
  Country: US (occurrence: US)
  Receive Date: 20200422
  Receipt Date: 20201223
  Transmission Date: 20210113
  Serious: Yes (Disabling)
  Sender: FDA-Public Use
  Company Number: US-ELI_LILLY_AND_COMPANY-US202004005712

PATIENT
  Sex: Male

DRUGS (11)
  1. HUMULIN 70/30 [Suspect]
     Active Substance: INSULIN HUMAN
     Dosage: 145 U, TID
     Route: 058
  2. HUMULIN N [Suspect]
     Active Substance: INSULIN HUMAN
     Indication: DIABETES MELLITUS
     Dosage: 60 U, DAILY
     Route: 058
  3. HUMULIN 70/30 [Suspect]
     Active Substance: INSULIN HUMAN
     Indication: TYPE 1 DIABETES MELLITUS
     Dosage: 300 U, DAILY
     Route: 058
     Dates: start: 2000
  4. HUMULIN 70/30 [Suspect]
     Active Substance: INSULIN HUMAN
     Dosage: 145 U, TID
     Route: 058
  5. HUMULIN R [Suspect]
     Active Substance: INSULIN HUMAN
     Indication: TYPE 1 DIABETES MELLITUS
     Dosage: 165 U, DAILY
     Route: 058
     Dates: start: 2000
  6. HUMULIN R [Suspect]
     Active Substance: INSULIN HUMAN
     Dosage: 30 U, DAILY
     Route: 058
  7. HUMULIN R [Suspect]
     Active Substance: INSULIN HUMAN
     Dosage: 90 U, TID
     Route: 058
  8. HUMULIN R [Suspect]
     Active Substance: INSULIN HUMAN
     Dosage: 90 U, TID
     Route: 058
  9. HUMULIN N [Suspect]
     Active Substance: INSULIN HUMAN
     Dosage: 60 U, DAILY
     Route: 058
  10. HUMULIN R [Suspect]
     Active Substance: INSULIN HUMAN
     Dosage: 30 U, DAILY
     Route: 058
  11. HUMULIN R [Suspect]
     Active Substance: INSULIN HUMAN
     Indication: TYPE 1 DIABETES MELLITUS
     Dosage: UNK UNK, UNKNOWN
     Route: 058

REACTIONS (3)
  - Wrong technique in product usage process [Unknown]
  - Glycosylated haemoglobin abnormal [Not Recovered/Not Resolved]
  - Chronic obstructive pulmonary disease [Unknown]
